FAERS Safety Report 19841240 (Version 1)
Quarter: 2021Q3

REPORT INFORMATION
  Report Type: Spontaneous
  Country: US (occurrence: US)
  Receive Date: 20210916
  Receipt Date: 20210916
  Transmission Date: 20211014
  Serious: Yes (Life-Threatening, Hospitalization, Other)
  Sender: FDA-Public Use
  Company Number: US-PFIZER INC-202101156425

PATIENT
  Age: 74 Year
  Sex: Male

DRUGS (3)
  1. HEPARIN SODIUM. [Suspect]
     Active Substance: HEPARIN SODIUM
     Indication: DEEP VEIN THROMBOSIS
     Dosage: UNK
  2. HEPARIN SODIUM. [Suspect]
     Active Substance: HEPARIN SODIUM
     Indication: THROMBOPHLEBITIS SUPERFICIAL
  3. ASPIRIN (E.C.) [Suspect]
     Active Substance: ASPIRIN
     Dosage: 325 MG, 1X/DAY

REACTIONS (2)
  - Haemoperitoneum [Recovered/Resolved]
  - Haemorrhagic cholecystitis [Recovered/Resolved]
